FAERS Safety Report 11684609 (Version 5)
Quarter: 2016Q2

REPORT INFORMATION
  Report Type: Report from Study
  Country: DE (occurrence: US)
  Receive Date: 20151029
  Receipt Date: 20160607
  Transmission Date: 20160815
  Serious: Yes (Hospitalization, Other)
  Sender: FDA-Public Use
  Company Number: DE-ACTELION-A-NJ2015-121983

PATIENT
  Age: 70 Year
  Sex: Female
  Weight: 81.63 kg

DRUGS (12)
  1. RIOCIGUAT [Suspect]
     Active Substance: RIOCIGUAT
     Dosage: 2 UNK, UNK
     Route: 048
  2. RIOCIGUAT [Suspect]
     Active Substance: RIOCIGUAT
     Indication: PRODUCT USED FOR UNKNOWN INDICATION
     Dosage: 1 MG, TID
     Route: 048
     Dates: start: 20150114
  3. RIOCIGUAT [Suspect]
     Active Substance: RIOCIGUAT
     Dosage: 0.5 MG, TID
     Route: 048
  4. RIOCIGUAT [Suspect]
     Active Substance: RIOCIGUAT
     Dosage: 1.5 MG, TID
     Route: 048
  5. RIOCIGUAT [Suspect]
     Active Substance: RIOCIGUAT
     Dosage: 1 MG, UNK
     Route: 048
  6. RIOCIGUAT [Suspect]
     Active Substance: RIOCIGUAT
     Dosage: 1 MG, TID
     Route: 048
  7. TYVASO [Suspect]
     Active Substance: TREPROSTINIL
     Indication: PULMONARY ARTERIAL HYPERTENSION
     Dosage: 18-54 MCG,3 BREATHS, QID
     Route: 055
     Dates: start: 20151218
  8. VENTAVIS [Suspect]
     Active Substance: ILOPROST
     Indication: PULMONARY ARTERIAL HYPERTENSION
     Dosage: UNK
     Route: 055
     Dates: end: 20151221
  9. RIOCIGUAT [Suspect]
     Active Substance: RIOCIGUAT
     Dosage: 2.5 UNK, UNK
     Route: 048
  10. RIOCIGUAT [Suspect]
     Active Substance: RIOCIGUAT
     Dosage: 3 MG, QD
     Route: 048
  11. RIOCIGUAT [Suspect]
     Active Substance: RIOCIGUAT
     Dosage: 1 MG, TID
     Route: 048
  12. COUMADIN [Concomitant]
     Active Substance: WARFARIN SODIUM

REACTIONS (11)
  - Hypotension [Unknown]
  - Dizziness [Unknown]
  - Headache [Recovering/Resolving]
  - Oedema peripheral [Unknown]
  - Catheterisation cardiac [Unknown]
  - Blood pressure decreased [Not Recovered/Not Resolved]
  - Oesophageal pain [Unknown]
  - Swelling [Unknown]
  - Dyspnoea exertional [Unknown]
  - Fatigue [Unknown]
  - Oesophageal discomfort [Unknown]

NARRATIVE: CASE EVENT DATE: 20151016
